FAERS Safety Report 7382402-7 (Version None)
Quarter: 2011Q1

REPORT INFORMATION
  Report Type: 
  Country: None (occurrence: None)
  Receive Date: 20110329
  Receipt Date: 20110221
  Transmission Date: 20110831
  Serious: Yes (Death, Other)
  Sender: FDA-Public Use
  Company Number: US-BAYER-200915962NA

PATIENT
  Sex: Male

DRUGS (2)
  1. TRASYLOL [Suspect]
     Indication: CORONARY ARTERY BYPASS
     Dates: start: 20051101
  2. DOBUTAMINE [Concomitant]
     Indication: LOW CARDIAC OUTPUT SYNDROME

REACTIONS (13)
  - ADVERSE EVENT [None]
  - FEAR [None]
  - DEATH [None]
  - UNEVALUABLE EVENT [None]
  - RENAL FAILURE [None]
  - MULTI-ORGAN FAILURE [None]
  - EMOTIONAL DISTRESS [None]
  - ANXIETY [None]
  - STRESS [None]
  - PAIN [None]
  - CARDIAC ARREST [None]
  - ANHEDONIA [None]
  - INJURY [None]
